FAERS Safety Report 13232297 (Version 3)
Quarter: 2017Q4

REPORT INFORMATION
  Report Type: Report from Study
  Country: None (occurrence: BR)
  Receive Date: 20170214
  Receipt Date: 20171228
  Transmission Date: 20180320
  Serious: Yes (Hospitalization, Other)
  Sender: FDA-Public Use
  Company Number: BR-ABBVIE-17P-020-1872237-00

PATIENT
  Age: 70 Year
  Sex: Female
  Weight: 75 kg

DRUGS (5)
  1. HUMIRA [Suspect]
     Active Substance: ADALIMUMAB
     Indication: CROHN^S DISEASE
     Dosage: WEEK ZERO
     Route: 058
     Dates: start: 20140128, end: 20140128
  2. DONILA [Concomitant]
     Active Substance: DONEPEZIL HYDROCHLORIDE
     Indication: HYPERTENSION
  3. HUMIRA [Suspect]
     Active Substance: ADALIMUMAB
     Dosage: WEEK TWO
     Route: 058
     Dates: start: 201402, end: 201402
  4. HUMIRA [Suspect]
     Active Substance: ADALIMUMAB
     Route: 058
  5. ZART [Concomitant]
     Indication: HYPERTENSION

REACTIONS (12)
  - Dementia Alzheimer^s type [Recovering/Resolving]
  - Syncope [Recovered/Resolved]
  - Fall [Recovered/Resolved]
  - Wound haemorrhage [Not Recovered/Not Resolved]
  - Face injury [Recovered/Resolved]
  - Joint injury [Recovered/Resolved]
  - Asthenia [Unknown]
  - Contusion [Recovering/Resolving]
  - Arthralgia [Recovering/Resolving]
  - Psoriasis [Not Recovered/Not Resolved]
  - Abdominal injury [Recovered/Resolved]
  - Limb injury [Not Recovered/Not Resolved]

NARRATIVE: CASE EVENT DATE: 201605
